FAERS Safety Report 5780302-7 (Version None)
Quarter: 2008Q2

REPORT INFORMATION
  Report Type: 
  Country: None (occurrence: None)
  Receive Date: 20080620
  Receipt Date: 20080611
  Transmission Date: 20081010
  Serious: Yes (Life-Threatening, Hospitalization)
  Sender: FDA-Public Use
  Company Number: IN-AVENTIS-200815522GDDC

PATIENT
  Age: 45 Year
  Sex: Male
  Weight: 65 kg

DRUGS (2)
  1. ARAVA [Suspect]
     Indication: RHEUMATOID ARTHRITIS
     Route: 048
  2. METHOTREXATE [Concomitant]
     Dosage: DOSE: UNK

REACTIONS (4)
  - HEPATITIS [None]
  - PYREXIA [None]
  - RASH GENERALISED [None]
  - RENAL FAILURE ACUTE [None]
